FAERS Safety Report 12965872 (Version 2)
Quarter: 2016Q4

REPORT INFORMATION
  Report Type: Spontaneous
  Country: DE (occurrence: DE)
  Receive Date: 20161122
  Receipt Date: 20161216
  Transmission Date: 20170207
  Serious: Yes (Other)
  Sender: FDA-Public Use
  Company Number: DE-BAYER-2016-220473

PATIENT
  Sex: Male

DRUGS (3)
  1. ASPIRIN PROTECT 100 [Suspect]
     Active Substance: ASPIRIN
     Indication: CEREBROVASCULAR ACCIDENT PROPHYLAXIS
     Dosage: UNK
  2. SIMVASTATIN. [Concomitant]
     Active Substance: SIMVASTATIN
     Dosage: UNK
  3. XARELTO [Suspect]
     Active Substance: RIVAROXABAN

REACTIONS (5)
  - Epilepsy [None]
  - Transient ischaemic attack [None]
  - Cerebrovascular accident [None]
  - Fall [None]
  - Product used for unknown indication [None]
